FAERS Safety Report 9905519 (Version 8)
Quarter: 2015Q3

REPORT INFORMATION
  Report Type: Report from Study
  Country: US (occurrence: US)
  Receive Date: 20140218
  Receipt Date: 20150915
  Transmission Date: 20151125
  Serious: Yes (Hospitalization)
  Sender: FDA-Public Use
  Company Number: US-VERTEX PHARMACEUTICALS INC-2014-000767

PATIENT
  Age: 19 Year
  Sex: Female

DRUGS (1)
  1. KALYDECO [Suspect]
     Active Substance: IVACAFTOR
     Indication: CYSTIC FIBROSIS
     Dosage: 150 MG, BID
     Route: 048
     Dates: start: 20120207

REACTIONS (9)
  - Gastroenteritis viral [Recovering/Resolving]
  - Staphylococcal infection [Unknown]
  - Sinus operation [Recovering/Resolving]
  - Mycobacterium avium complex infection [Unknown]
  - Vomiting [Unknown]
  - Malaise [Unknown]
  - Atelectasis [Unknown]
  - Lung infection [Unknown]
  - Cough [Unknown]

NARRATIVE: CASE EVENT DATE: 2013
